FAERS Safety Report 5736911-4 (Version None)
Quarter: 2008Q2

REPORT INFORMATION
  Report Type: 
  Country: None (occurrence: None)
  Receive Date: 20080509
  Receipt Date: 20080428
  Transmission Date: 20081010
  Serious: Yes (Other)
  Sender: FDA-Public Use
  Company Number: CHNY2008FI01798

PATIENT
  Sex: Female

DRUGS (2)
  1. NICOTINE [Suspect]
     Indication: SMOKING CESSATION THERAPY
     Dosage: AROUND 12 GUMS/DAY, CHEWED
  2. YASMININELLE (DROSPIRENONE, ETHINYLESTRADIOL) [Concomitant]

REACTIONS (7)
  - DRUG DEPENDENCE [None]
  - FATIGUE [None]
  - MALAISE [None]
  - SENSATION OF FOREIGN BODY [None]
  - VOMITING [None]
  - WEIGHT INCREASED [None]
  - WRONG TECHNIQUE IN DRUG USAGE PROCESS [None]
